FAERS Safety Report 16649426 (Version 2)
Quarter: 2019Q4

REPORT INFORMATION
  Report Type: Report from Study
  Country: US (occurrence: US)
  Receive Date: 20190730
  Receipt Date: 20191004
  Transmission Date: 20200122
  Serious: Yes (Hospitalization, Other)
  Sender: FDA-Public Use
  Company Number: US-ARIAD-2017US007835

PATIENT
  Sex: Male

DRUGS (2)
  1. PONATINIB [Suspect]
     Active Substance: PONATINIB
     Indication: MYELOID LEUKAEMIA
     Dosage: 30 MILLIGRAM, QD
     Route: 048
     Dates: start: 20170218
  2. PONATINIB [Suspect]
     Active Substance: PONATINIB
     Dosage: 15 MILLIGRAM
     Route: 048

REACTIONS (24)
  - Fall [Unknown]
  - Pyrexia [Unknown]
  - Nausea [Unknown]
  - Osteonecrosis [Unknown]
  - Angular cheilitis [Unknown]
  - Myalgia [Unknown]
  - Arthralgia [Unknown]
  - Insomnia [Unknown]
  - Diarrhoea [Unknown]
  - Visual impairment [Unknown]
  - Asthenia [Unknown]
  - Anaemia [Unknown]
  - Head injury [Unknown]
  - Vitamin D decreased [Unknown]
  - Decreased appetite [Unknown]
  - Rash [Unknown]
  - Portal vein thrombosis [Unknown]
  - Back pain [Unknown]
  - Full blood count decreased [Unknown]
  - Vomiting [Unknown]
  - Splenomegaly [Unknown]
  - Depression [Unknown]
  - Hypoalbuminaemia [Unknown]
  - Abdominal pain [Unknown]
